FAERS Safety Report 6056157-2 (Version None)
Quarter: 2009Q1

REPORT INFORMATION
  Report Type: 
  Country: None (occurrence: None)
  Receive Date: 20090129
  Receipt Date: 20090116
  Transmission Date: 20090719
  Serious: Yes (Death)
  Sender: FDA-Public Use
  Company Number: US-RANBAXY-2009RR-21240

PATIENT
  Age: 47 Year
  Sex: Female

DRUGS (5)
  1. FLUOXETINE HCL [Suspect]
     Indication: COMPLETED SUICIDE
     Route: 048
  2. LORAZEPAM [Suspect]
     Indication: COMPLETED SUICIDE
     Route: 048
  3. OXYCODONE AND ACETAMINOPHEN [Suspect]
     Indication: COMPLETED SUICIDE
     Route: 048
  4. BUPROPION HCL [Suspect]
     Indication: COMPLETED SUICIDE
     Route: 048
  5. CYPROHEPTADINE HCL [Suspect]
     Indication: COMPLETED SUICIDE
     Route: 048

REACTIONS (2)
  - COMPLETED SUICIDE [None]
  - OVERDOSE [None]
